FAERS Safety Report 6625609-6 (Version None)
Quarter: 2010Q1

REPORT INFORMATION
  Report Type: 
  Country: None (occurrence: None)
  Receive Date: 20100223
  Receipt Date: 20091111
  Transmission Date: 20100710
  Serious: No
  Sender: FDA-Public Use
  Company Number: 8054550

PATIENT
  Sex: Female
  Weight: 68.1 kg

DRUGS (4)
  1. CERTOLIZUMAB PEGOL (UCB, INC) [Suspect]
     Indication: RHEUMATOID ARTHRITIS
     Dosage: SUBCUTANEOUS
     Route: 058
     Dates: start: 20091110
  2. PREDNISONE TAB [Concomitant]
  3. PLAQUENIL [Concomitant]
  4. LEFLUNOMIDE [Concomitant]

REACTIONS (1)
  - ARTHRALGIA [None]
